FAERS Safety Report 4498458-5 (Version None)
Quarter: 2004Q4

REPORT INFORMATION
  Report Type: 
  Country: None (occurrence: None)
  Receive Date: 20041105
  Receipt Date: 20041020
  Transmission Date: 20050328
  Serious: Yes (Life-Threatening)
  Sender: FDA-Public Use
  Company Number: 8007832

PATIENT
  Age: 56 Year
  Sex: Male
  Weight: 68 kg

DRUGS (5)
  1. KEPPRA [Suspect]
     Indication: EPILEPSY
     Dosage: 500 MG 3/D PO
     Route: 048
     Dates: start: 20040315, end: 20040920
  2. VALPROIC ACID [Concomitant]
  3. SECTRAL  AKITA [Concomitant]
  4. TAHOR [Concomitant]
  5. KENZEN [Concomitant]

REACTIONS (1)
  - STATUS EPILEPTICUS [None]
